FAERS Safety Report 7486696-9 (Version None)
Quarter: 2011Q2

REPORT INFORMATION
  Report Type: 
  Country: None (occurrence: None)
  Receive Date: 20110517
  Receipt Date: 20100831
  Transmission Date: 20111010
  Serious: No
  Sender: FDA-Public Use
  Company Number: US-NOVEN-ALL1-2010-04612

PATIENT
  Sex: Male
  Weight: 24.943 kg

DRUGS (3)
  1. DAYTRANA [Suspect]
     Dosage: UNK MG, UNKNOWN
     Route: 062
     Dates: start: 20100101, end: 20100101
  2. DAYTRANA [Suspect]
     Dosage: 10 MG, 1X/DAY:QD
     Route: 062
     Dates: start: 20100801, end: 20100801
  3. DAYTRANA [Suspect]
     Dosage: UNK MG,CUTTING 20 MG PATCH IN HALF 1X/DAY:QD
     Route: 062
     Dates: start: 20100801

REACTIONS (4)
  - APPLICATION SITE EROSION [None]
  - DRUG DIVERSION [None]
  - WRONG TECHNIQUE IN DRUG USAGE PROCESS [None]
  - PRODUCT QUALITY ISSUE [None]
